FAERS Safety Report 23706320 (Version 1)
Quarter: 2024Q2

REPORT INFORMATION
  Report Type: Spontaneous
  Country: US (occurrence: US)
  Receive Date: 20240404
  Receipt Date: 20240404
  Transmission Date: 20240716
  Serious: No
  Sender: FDA-Public Use
  Company Number: US-THE RITEDOSE CORPORATION-2023RIT000100

PATIENT

DRUGS (1)
  1. IPRATROPIUM BROMIDE [Suspect]
     Active Substance: IPRATROPIUM BROMIDE\IPRATROPIUM BROMIDE ANHYDROUS
     Indication: Asthma
     Dosage: UNK
     Route: 055

REACTIONS (3)
  - Asthma [Unknown]
  - Off label use [Unknown]
  - Product dose omission issue [Unknown]
